FAERS Safety Report 21372056 (Version 1)
Quarter: 2022Q3

REPORT INFORMATION
  Report Type: Spontaneous
  Country: DE (occurrence: DE)
  Receive Date: 20220923
  Receipt Date: 20220923
  Transmission Date: 20221026
  Serious: Yes (Other)
  Sender: FDA-Public Use
  Company Number: DE-BRISTOL-MYERS SQUIBB COMPANY-2022-103027

PATIENT
  Age: 59 Year
  Sex: Female

DRUGS (6)
  1. PEMETREXED [Suspect]
     Active Substance: PEMETREXED
     Indication: Non-small cell lung cancer
     Dosage: 500 MG/M2, UNKNOWN
     Route: 065
     Dates: start: 202111
  2. OPDIVO [Suspect]
     Active Substance: NIVOLUMAB
     Indication: Non-small cell lung cancer
     Dosage: 360 MG, UNKNOWN
     Route: 065
     Dates: start: 202111
  3. OPDIVO [Suspect]
     Active Substance: NIVOLUMAB
     Dosage: 5TH CYCLE WITH MONOTHERAPY NIVOLUMAB.
     Route: 065
     Dates: start: 202202
  4. YERVOY [Suspect]
     Active Substance: IPILIMUMAB
     Indication: Non-small cell lung cancer
     Dosage: 1 MG/KG, UNKNOWN
     Route: 065
     Dates: start: 202111
  5. CARBOPLATIN [Suspect]
     Active Substance: CARBOPLATIN
     Indication: Non-small cell lung cancer
     Dosage: UNK UNK, UNKNOWN (AUC 5 506MG)
     Route: 065
     Dates: start: 202111
  6. MARCUMAR [Concomitant]
     Active Substance: PHENPROCOUMON
     Indication: Product used for unknown indication
     Dosage: UNK
     Route: 065

REACTIONS (4)
  - Autoimmune hepatitis [Recovered/Resolved]
  - Autoimmune nephritis [Unknown]
  - Autoimmune colitis [Recovered/Resolved]
  - Malignant neoplasm progression [Unknown]

NARRATIVE: CASE EVENT DATE: 20211201
